FAERS Safety Report 15101342 (Version 1)
Quarter: 2018Q3

REPORT INFORMATION
  Report Type: Spontaneous
  Country: US (occurrence: US)
  Receive Date: 20180703
  Receipt Date: 20180703
  Transmission Date: 20181010
  Serious: Yes (Other)
  Sender: FDA-Public Use
  Company Number: US-BRACCO-2018US03424

PATIENT
  Sex: Female

DRUGS (2)
  1. MULTIHANCE [Suspect]
     Active Substance: GADOBENATE DIMEGLUMINE
     Indication: NUCLEAR MAGNETIC RESONANCE IMAGING
     Dosage: UNK
  2. GADOLINIUM [Suspect]
     Active Substance: GADOLINIUM
     Indication: NUCLEAR MAGNETIC RESONANCE IMAGING

REACTIONS (22)
  - Weight decreased [Unknown]
  - Renal injury [Unknown]
  - Mental status changes [Unknown]
  - Alopecia [Unknown]
  - Osteoporosis [Unknown]
  - Arthralgia [Unknown]
  - Fatigue [Unknown]
  - Pain [Unknown]
  - Tremor [Unknown]
  - Rash [Unknown]
  - Asthenia [Unknown]
  - Mass [Unknown]
  - Hypoglycaemia [Unknown]
  - Paraesthesia [Unknown]
  - Hypoaesthesia [Unknown]
  - Gadolinium deposition disease [Unknown]
  - Confusional state [Unknown]
  - Muscle spasms [Unknown]
  - Body temperature decreased [Unknown]
  - Inflammation [Unknown]
  - Injury [None]
  - Burning sensation [Unknown]
